FAERS Safety Report 12826441 (Version 1)
Quarter: 2016Q4

REPORT INFORMATION
  Report Type: Spontaneous
  Country: US (occurrence: US)
  Receive Date: 20161007
  Receipt Date: 20161007
  Transmission Date: 20170207
  Serious: No
  Sender: FDA-Public Use
  Company Number: US-WATSON-2016-08296

PATIENT
  Age: 70 Year
  Sex: Male

DRUGS (6)
  1. FENTANYL-100 (WATSON LABORATORIES) [Suspect]
     Active Substance: FENTANYL
     Indication: BONE PAIN
     Dosage: UNK, UNKNOWN
     Route: 062
     Dates: start: 201602
  2. FENTANYL-75 (WATSON LABORATORIES) [Suspect]
     Active Substance: FENTANYL
     Indication: BONE PAIN
     Dosage: UNK, UNKNOWN
     Route: 062
     Dates: start: 201512, end: 201602
  3. FENTANYL-25 (WATSON LABORATORIES) [Suspect]
     Active Substance: FENTANYL
     Indication: BONE PAIN
     Dosage: UNK, UNKNOWN
     Route: 062
     Dates: start: 201509, end: 201510
  4. MEDROXYPROGESTERONE [Concomitant]
     Active Substance: MEDROXYPROGESTERONE
     Indication: TEMPERATURE INTOLERANCE
     Dosage: UNK, UNKNOWN
     Route: 065
  5. MEDROXYPROGESTERONE [Concomitant]
     Active Substance: MEDROXYPROGESTERONE
     Indication: HYPERHIDROSIS
  6. FENTANYL-50 (WATSON LABORATORIES) [Suspect]
     Active Substance: FENTANYL
     Indication: BONE PAIN
     Dosage: UNK, UNKNOWN
     Route: 062
     Dates: start: 201510, end: 201512

REACTIONS (5)
  - Temperature intolerance [Not Recovered/Not Resolved]
  - Hyperhidrosis [Not Recovered/Not Resolved]
  - Application site rash [Not Recovered/Not Resolved]
  - Application site pruritus [Not Recovered/Not Resolved]
  - Condition aggravated [Not Recovered/Not Resolved]

NARRATIVE: CASE EVENT DATE: 201509
